FAERS Safety Report 8390924-5 (Version None)
Quarter: 2012Q2

REPORT INFORMATION
  Report Type: 
  Country: None (occurrence: None)
  Receive Date: 20120529
  Receipt Date: 20120515
  Transmission Date: 20120825
  Serious: Yes (Death, Hospitalization, Other)
  Sender: FDA-Public Use
  Company Number: FR-JNJFOC-20120515100

PATIENT

DRUGS (5)
  1. METHOTREXATE [Suspect]
     Indication: BLADDER CANCER
     Route: 065
  2. DOXORUBICIN HCL [Suspect]
     Indication: BLADDER CANCER
     Route: 042
  3. VINBLASTINE SULFATE [Suspect]
     Indication: BLADDER CANCER
     Route: 065
  4. CISPLATIN [Suspect]
     Indication: BLADDER CANCER
     Route: 065
  5. NEUPOGEN [Concomitant]
     Route: 065

REACTIONS (6)
  - HAEMATOTOXICITY [None]
  - NEOPLASM MALIGNANT [None]
  - FEBRILE NEUTROPENIA [None]
  - OFF LABEL USE [None]
  - INFECTION [None]
  - DEHYDRATION [None]
